FAERS Safety Report 8327115-X (Version None)
Quarter: 2012Q2

REPORT INFORMATION
  Report Type: 
  Country: None (occurrence: None)
  Receive Date: 20120501
  Receipt Date: 20120326
  Transmission Date: 20120825
  Serious: No
  Sender: FDA-Public Use
  Company Number: US-SANOFI-AVENTIS-2012SA021232

PATIENT
  Age: 63 Year
  Sex: Female

DRUGS (2)
  1. APIDRA [Suspect]
     Indication: TYPE 2 DIABETES MELLITUS
     Dosage: 5 UNITS AT LUNCH AND 10 UNITS AT DINNER.
     Route: 058
     Dates: start: 20120301
  2. LANTUS [Concomitant]

REACTIONS (3)
  - OEDEMA PERIPHERAL [None]
  - WEIGHT INCREASED [None]
  - RASH [None]
